FAERS Safety Report 26056214 (Version 1)
Quarter: 2025Q4

REPORT INFORMATION
  Report Type: Spontaneous
  Country: US (occurrence: US)
  Receive Date: 20251118
  Receipt Date: 20251118
  Transmission Date: 20260117
  Serious: No
  Sender: APELLIS PHARMACEUTICALS
  Company Number: US-APELLIS PHARMACEUTICALS-APL-2023-002639

PATIENT

DRUGS (1)
  1. SYFOVRE [Suspect]
     Active Substance: PEGCETACOPLAN
     Indication: Product used for unknown indication
     Dosage: UNK, EVERY 8 WEEKS
     Route: 031
     Dates: start: 20230331

REACTIONS (1)
  - Eye complication associated with device [Recovered/Resolved]

NARRATIVE: CASE EVENT DATE: 20230331
